FAERS Safety Report 9046800 (Version 1)
Quarter: 2013Q1

REPORT INFORMATION
  Report Type: Spontaneous
  Country: US (occurrence: US)
  Receive Date: 20130204
  Receipt Date: 20130204
  Transmission Date: 20140127
  Serious: Yes (Hospitalization)
  Sender: FDA-Public Use
  Company Number: US-BIOGENIDEC-106439

PATIENT
  Age: 38 Year
  Sex: Female
  Weight: 56 kg

DRUGS (6)
  1. AVONEX [Suspect]
     Indication: MULTIPLE SCLEROSIS
     Route: 030
     Dates: start: 19961001
  2. AVONEX [Suspect]
     Indication: MULTIPLE SCLEROSIS
     Route: 030
  3. VITAMINS [Concomitant]
     Indication: SUPPLEMENTATION THERAPY
  4. ZOLOFT [Concomitant]
     Indication: DEPRESSION
  5. ZOLOFT [Concomitant]
     Indication: MOOD SWINGS
  6. GAMMAGLOBULIN [Concomitant]

REACTIONS (4)
  - Convulsion [Recovered/Resolved]
  - Rhinitis [Recovered/Resolved]
  - Muscle spasms [Recovered/Resolved]
  - Insomnia [Recovered/Resolved]
